FAERS Safety Report 8207457-9 (Version None)
Quarter: 2012Q1

REPORT INFORMATION
  Report Type: 
  Country: None (occurrence: None)
  Receive Date: 20120313
  Receipt Date: 20120313
  Transmission Date: 20120608
  Serious: Yes (Death, Life-Threatening)
  Sender: FDA-Public Use
  Company Number: None

PATIENT
  Age: 54 Year
  Sex: Male
  Weight: 106.2 kg

DRUGS (3)
  1. CYTOTOXIC T-LYMPHOCYTES, 2X10E7/M2 [Suspect]
     Indication: ADENOVIRUS INFECTION
     Dosage: 2X10E7/M2, SINGLE DOSE INTRAVENOUS
     Route: 042
     Dates: start: 20120221
  2. ACETAMINOPHEN [Concomitant]
  3. DIPHENHYDRAMINE HCL [Concomitant]

REACTIONS (2)
  - ADENOVIRUS INFECTION [None]
  - DISEASE PROGRESSION [None]
